FAERS Safety Report 5775075-8 (Version None)
Quarter: 2008Q2

REPORT INFORMATION
  Report Type: 
  Country: None (occurrence: None)
  Receive Date: 20080612
  Receipt Date: 20080131
  Transmission Date: 20081010
  Serious: No
  Sender: FDA-Public Use
  Company Number: US022551

PATIENT
  Age: 18 Year
  Sex: Male

DRUGS (3)
  1. FENTORA [Suspect]
     Indication: TRIGEMINAL NEURALGIA
     Dosage: 400 UG BUCCAL
     Route: 002
  2. FENTORA [Suspect]
     Indication: TRIGEMINAL NEURALGIA
     Dosage: 600 UG QD BUCCAL
     Route: 002
  3. DURAGESIC-100 [Concomitant]

REACTIONS (2)
  - DRUG INEFFECTIVE [None]
  - DRUG PRESCRIBING ERROR [None]
